FAERS Safety Report 15992069 (Version 1)
Quarter: 2019Q1

REPORT INFORMATION
  Report Type: Spontaneous
  Country: US (occurrence: US)
  Receive Date: 20190221
  Receipt Date: 20190221
  Transmission Date: 20190418
  Serious: Yes (Other)
  Sender: FDA-Public Use
  Company Number: US-NOVOPROD-647093

PATIENT
  Age: 56 Year
  Sex: Female

DRUGS (5)
  1. LEVEMIR [Suspect]
     Active Substance: INSULIN DETEMIR
     Dosage: 40 IU, BID
     Route: 058
  2. NOVOLOG [Suspect]
     Active Substance: INSULIN ASPART
     Indication: DIABETES MELLITUS
     Dosage: 5 IU, BID
     Route: 058
     Dates: start: 201810
  3. NOVOLOG [Suspect]
     Active Substance: INSULIN ASPART
     Dosage: 10 IU, BID
     Route: 058
  4. LEVEMIR [Suspect]
     Active Substance: INSULIN DETEMIR
     Indication: DIABETES MELLITUS
     Dosage: 25 IU, BID
     Route: 058
     Dates: start: 2018
  5. LEVEMIR [Suspect]
     Active Substance: INSULIN DETEMIR
     Dosage: 55 IU, BID
     Route: 058

REACTIONS (2)
  - Cataract [Not Recovered/Not Resolved]
  - Blood glucose increased [Recovered/Resolved]

NARRATIVE: CASE EVENT DATE: 201902
